FAERS Safety Report 5307136-1 (Version None)
Quarter: 2007Q2

REPORT INFORMATION
  Report Type: 
  Country: None (occurrence: None)
  Receive Date: 20070425
  Receipt Date: 20070412
  Transmission Date: 20071010
  Serious: Yes (Hospitalization)
  Sender: FDA-Public Use
  Company Number: US-AMGEN-STX217632

PATIENT
  Sex: Female
  Weight: 68.1 kg

DRUGS (6)
  1. ENBREL [Suspect]
     Indication: RHEUMATOID ARTHRITIS
     Route: 058
     Dates: start: 20070115
  2. METHOTREXATE [Concomitant]
     Route: 048
     Dates: start: 19970101
  3. DICLOFENAC [Concomitant]
  4. FOLIC ACID [Concomitant]
  5. ISONIAZID [Concomitant]
  6. VITAMIN B6 [Concomitant]

REACTIONS (1)
  - RHEUMATOID ARTHRITIS [None]
